FAERS Safety Report 6186463-2 (Version None)
Quarter: 2009Q2

REPORT INFORMATION
  Report Type: 
  Country: None (occurrence: None)
  Receive Date: 20090511
  Receipt Date: 20080527
  Transmission Date: 20091009
  Serious: Yes (Other)
  Sender: FDA-Public Use
  Company Number: NL-GENENTECH-282738

PATIENT

DRUGS (1)
  1. RITUXIMAB [Suspect]
     Indication: RHEUMATOID ARTHRITIS
     Route: 065

REACTIONS (21)
  - BLOOD IMMUNOGLOBULIN M DECREASED [None]
  - CANDIDIASIS [None]
  - CHILLS [None]
  - CYSTITIS [None]
  - DIZZINESS [None]
  - DYSPNOEA [None]
  - EMBOLISM [None]
  - HEPATITIS ACUTE [None]
  - HERPES ZOSTER [None]
  - HYPOTENSION [None]
  - INFUSION RELATED REACTION [None]
  - MALAISE [None]
  - NAUSEA [None]
  - PNEUMONIA [None]
  - PULMONARY EMBOLISM [None]
  - PURPURA [None]
  - RESPIRATORY TRACT INFECTION [None]
  - RHEUMATOID ARTHRITIS [None]
  - SKIN INFECTION [None]
  - URINARY TRACT INFECTION [None]
  - UROSEPSIS [None]
